FAERS Safety Report 17989691 (Version 1)
Quarter: 2020Q3

REPORT INFORMATION
  Report Type: Spontaneous
  Country: HR (occurrence: HR)
  Receive Date: 20200707
  Receipt Date: 20200707
  Transmission Date: 20201103
  Serious: Yes (Other)
  Sender: FDA-Public Use
  Company Number: HR-JNJFOC-20200639107

PATIENT
  Age: 49 Year
  Sex: Male

DRUGS (19)
  1. ZARACET [Concomitant]
     Active Substance: ACETAMINOPHEN\TRAMADOL HYDROCHLORIDE
     Route: 065
  2. SIMPONI [Suspect]
     Active Substance: GOLIMUMAB
     Indication: COLITIS ULCERATIVE
  3. SULFASALAZINE. [Concomitant]
     Active Substance: SULFASALAZINE
     Route: 065
     Dates: start: 201611
  4. LIOTON [Concomitant]
     Route: 065
  5. FLEXID                             /00065702/ [Concomitant]
     Indication: EPIDIDYMITIS
  6. METHOTREXATE. [Concomitant]
     Active Substance: METHOTREXATE
     Indication: ANKYLOSING SPONDYLITIS
     Route: 065
     Dates: start: 201105
  7. ETORICOXIB. [Concomitant]
     Active Substance: ETORICOXIB
     Indication: PRODUCT USED FOR UNKNOWN INDICATION
     Route: 065
     Dates: start: 201611
  8. SYSTANE BALANCE [Concomitant]
     Active Substance: PROPYLENE GLYCOL
     Route: 065
  9. CONTROLOC [Concomitant]
     Active Substance: PANTOPRAZOLE SODIUM
     Dosage: 20 MG 1 IN THE MORNING AND 1 IN THE EVENING.
     Route: 065
  10. FOLIC ACID. [Concomitant]
     Active Substance: FOLIC ACID
     Indication: ANKYLOSING SPONDYLITIS
     Route: 065
     Dates: start: 201207
  11. SIMPONI [Suspect]
     Active Substance: GOLIMUMAB
     Indication: ANKYLOSING SPONDYLITIS
     Route: 058
  12. METHOTREXATE. [Concomitant]
     Active Substance: METHOTREXATE
     Route: 065
     Dates: start: 201204, end: 201609
  13. LEVOFLOXACIN. [Concomitant]
     Active Substance: LEVOFLOXACIN
     Indication: PRODUCT USED FOR UNKNOWN INDICATION
     Route: 065
     Dates: start: 201611
  14. SIMPONI [Suspect]
     Active Substance: GOLIMUMAB
     Indication: SPONDYLITIS
  15. SULFASALAZINE. [Concomitant]
     Active Substance: SULFASALAZINE
     Indication: ANKYLOSING SPONDYLITIS
     Route: 065
     Dates: start: 2005, end: 201105
  16. FLEXID                             /00065702/ [Concomitant]
     Indication: CYSTITIS
     Route: 065
  17. PANTOPRAZOLE [Concomitant]
     Active Substance: PANTOPRAZOLE
     Indication: COLITIS ULCERATIVE
     Route: 065
     Dates: start: 201609
  18. FOLACIN                            /00024201/ [Concomitant]
     Active Substance: FOLIC ACID
     Route: 065
  19. LUPOCET [Concomitant]
     Active Substance: ACETAMINOPHEN
     Dosage: 3 ?4 TABLETS
     Route: 065

REACTIONS (5)
  - Ankylosing spondylitis [Recovering/Resolving]
  - Viral infection [Recovered/Resolved]
  - Haematochezia [Unknown]
  - Dysgeusia [Unknown]
  - Pityriasis rosea [Unknown]

NARRATIVE: CASE EVENT DATE: 201705
